FAERS Safety Report 23969611 (Version 6)
Quarter: 2024Q3

REPORT INFORMATION
  Report Type: Spontaneous
  Country: US (occurrence: US)
  Receive Date: 20240613
  Receipt Date: 20240907
  Transmission Date: 20241016
  Serious: Yes (Hospitalization, Other)
  Sender: CELLTRION
  Company Number: US-CELLTRION INC.-2024US013936

PATIENT

DRUGS (7)
  1. INFLECTRA [Suspect]
     Active Substance: INFLIXIMAB-DYYB
     Indication: Rheumatoid arthritis
     Dosage: 200 MG OR SOMETHING, MARCH 29 (FIRST INFUSION)/200 MG FIRST INFUSION
     Route: 042
     Dates: start: 20240329
  2. INFLECTRA [Suspect]
     Active Substance: INFLIXIMAB-DYYB
     Dosage: I HAD ONE TWO WEEKS LATER, I THINK ON THE 18TH (2ND INFUSION)/200 MG SECOND INFUSION
     Route: 042
     Dates: start: 20240418
  3. INFLECTRA [Suspect]
     Active Substance: INFLIXIMAB-DYYB
     Dosage: 16TH OF MAY (THIRD INFUSION) / 200 MG THIRD INFUSION
     Route: 042
     Dates: start: 20240516, end: 20240516
  4. INFLECTRA [Suspect]
     Active Substance: INFLIXIMAB-DYYB
     Dosage: 17MAY / SHE HAD THE THIRD INFUSION OF INFLECTRA. / HER LAST INFUSION WAS ON 17MAY
     Route: 042
  5. CLARITIN [Suspect]
     Active Substance: LORATADINE
     Indication: Antiallergic therapy
  6. ACETAMINOPHEN [Suspect]
     Active Substance: ACETAMINOPHEN
     Indication: Product used for unknown indication
  7. TYLENOL [Suspect]
     Active Substance: ACETAMINOPHEN
     Indication: Product used for unknown indication

REACTIONS (19)
  - Blood calcium decreased [Not Recovered/Not Resolved]
  - Blood potassium decreased [Not Recovered/Not Resolved]
  - Lethargy [Not Recovered/Not Resolved]
  - Back pain [Not Recovered/Not Resolved]
  - Pain in jaw [Not Recovered/Not Resolved]
  - Gait disturbance [Not Recovered/Not Resolved]
  - Inflammation [Not Recovered/Not Resolved]
  - Adverse drug reaction [Unknown]
  - Arthralgia [Not Recovered/Not Resolved]
  - Headache [Unknown]
  - Myalgia [Not Recovered/Not Resolved]
  - Pain [Not Recovered/Not Resolved]
  - Pyrexia [Not Recovered/Not Resolved]
  - Hypertension [Not Recovered/Not Resolved]
  - Nausea [Not Recovered/Not Resolved]
  - Fatigue [Not Recovered/Not Resolved]
  - Musculoskeletal stiffness [Unknown]
  - Illness [Not Recovered/Not Resolved]
  - Overdose [Unknown]

NARRATIVE: CASE EVENT DATE: 20240501
